FAERS Safety Report 5696653-0 (Version None)
Quarter: 2008Q2

REPORT INFORMATION
  Report Type: 
  Country: None (occurrence: None)
  Receive Date: 20080408
  Receipt Date: 20060919
  Transmission Date: 20081010
  Serious: No
  Sender: FDA-Public Use
  Company Number: US-BAYER-US-2006-027879

PATIENT
  Sex: Female

DRUGS (1)
  1. YASMIN [Suspect]
     Route: 048

REACTIONS (1)
  - RASH GENERALISED [None]
